FAERS Safety Report 5648720-5 (Version None)
Quarter: 2008Q1

REPORT INFORMATION
  Report Type: 
  Country: None (occurrence: None)
  Receive Date: 20080303
  Receipt Date: 20080303
  Transmission Date: 20080703
  Serious: Yes (Death)
  Sender: FDA-Public Use
  Company Number: None

PATIENT
  Age: 76 Year
  Sex: Male

DRUGS (1)
  1. ACTIVASE [Suspect]
     Indication: CEREBROVASCULAR ACCIDENT
     Dosage: 63MG ONCE IV
     Route: 042
     Dates: start: 20080114, end: 20080114

REACTIONS (2)
  - HAEMORRHAGE INTRACRANIAL [None]
  - MENTAL IMPAIRMENT [None]
